FAERS Safety Report 7608702-0 (Version None)
Quarter: 2011Q3

REPORT INFORMATION
  Report Type: 
  Country: None (occurrence: None)
  Receive Date: 20110714
  Receipt Date: 20110704
  Transmission Date: 20111222
  Serious: Yes (Other)
  Sender: FDA-Public Use
  Company Number: DK-CELGENEUS-044-50794-11043688

PATIENT
  Age: 64 Year
  Sex: Male

DRUGS (1)
  1. VIDAZA [Suspect]
     Route: 065
     Dates: start: 20100101, end: 20101201

REACTIONS (2)
  - FIBROSIS [None]
  - BONE MARROW FAILURE [None]
